FAERS Safety Report 16950842 (Version 1)
Quarter: 2019Q4

REPORT INFORMATION
  Report Type: Spontaneous
  Country: GB (occurrence: GB)
  Receive Date: 20191023
  Receipt Date: 20191023
  Transmission Date: 20200122
  Serious: Yes (Other)
  Sender: FDA-Public Use
  Company Number: GB-ADVANZ PHARMA-201909001322

PATIENT

DRUGS (7)
  1. PREDNISOLONE. [Suspect]
     Active Substance: PREDNISOLONE
     Dosage: 0.5 %, QID; FOUR TIMES PER DAY
  2. CHLORAMPHENICOL [Suspect]
     Active Substance: CHLORAMPHENICOL
     Dosage: 1 %, QD, EVERY NIGHT
  3. SODIUM HYALURONATE [Suspect]
     Active Substance: HYALURONATE SODIUM
     Dosage: 0.2 %; EVERY TWO HOURS
  4. CYCLOPENTOLATE. [Suspect]
     Active Substance: CYCLOPENTOLATE
     Dosage: 1 %, TID (THREE TIMES PER DAY)
  5. CHLORAMPHENICOL [Suspect]
     Active Substance: CHLORAMPHENICOL
     Dosage: 0.5 %, QID (FOUR TIMES PER DAY)
  6. DICLOFENAC [Suspect]
     Active Substance: DICLOFENAC
     Dosage: UNK, QID (FOUR TIMES PER DAY)
  7. LEVOFLOXACIN. [Suspect]
     Active Substance: LEVOFLOXACIN
     Dosage: 0.5 %, EVERY TWO HOURS

REACTIONS (1)
  - Keratopathy [Recovered/Resolved with Sequelae]
